FAERS Safety Report 16187393 (Version 5)
Quarter: 2025Q2

REPORT INFORMATION
  Report Type: Report from Study
  Country: US (occurrence: US)
  Receive Date: 20190412
  Receipt Date: 20250428
  Transmission Date: 20250716
  Serious: No
  Sender: TAKEDA
  Company Number: US-SHIRE-US201912057

PATIENT
  Age: 53 Year
  Sex: Male

DRUGS (5)
  1. LANADELUMAB [Suspect]
     Active Substance: LANADELUMAB
     Indication: Immune system disorder
     Dosage: 300 MILLIGRAM, Q2WEEKS
     Dates: start: 20190314
  2. LANADELUMAB [Suspect]
     Active Substance: LANADELUMAB
     Dosage: 300 MILLIGRAM, Q2WEEKS
     Dates: start: 202001
  3. LANADELUMAB [Suspect]
     Active Substance: LANADELUMAB
  4. KALBITOR [Suspect]
     Active Substance: ECALLANTIDE
     Indication: Product used for unknown indication
  5. KALBITOR [Suspect]
     Active Substance: ECALLANTIDE

REACTIONS (2)
  - Hereditary angioedema [Recovered/Resolved]
  - Injection site erythema [Recovered/Resolved]

NARRATIVE: CASE EVENT DATE: 20190406
